FAERS Safety Report 5685538-1 (Version None)
Quarter: 2008Q1

REPORT INFORMATION
  Report Type: 
  Country: None (occurrence: None)
  Receive Date: 20080328
  Receipt Date: 20080318
  Transmission Date: 20080703
  Serious: Yes (Disabling, Other)
  Sender: FDA-Public Use
  Company Number: PT-BAYER-200814813GPV

PATIENT
  Age: 44 Year
  Sex: Female

DRUGS (1)
  1. MIRENA [Suspect]
     Indication: METRORRHAGIA
     Dosage: TOTAL DAILY DOSE: 20 ?G
     Route: 015
     Dates: start: 20070201, end: 20080201

REACTIONS (5)
  - DEPRESSIVE SYMPTOM [None]
  - IUCD COMPLICATION [None]
  - OEDEMA [None]
  - VULVAL ULCERATION [None]
  - VULVOVAGINAL PRURITUS [None]
